FAERS Safety Report 5971409-X (Version None)
Quarter: 2008Q4

REPORT INFORMATION
  Report Type: 
  Country: None (occurrence: None)
  Receive Date: 20081130
  Receipt Date: 20081120
  Transmission Date: 20090506
  Serious: Yes (Other)
  Sender: FDA-Public Use
  Company Number: FR-PFIZER INC-2008081325

PATIENT
  Sex: Female
  Weight: 62 kg

DRUGS (1)
  1. SALAZOPYRINE [Suspect]
     Indication: POLYARTHRITIS
     Dates: start: 20080824, end: 20080915

REACTIONS (8)
  - ALANINE AMINOTRANSFERASE INCREASED [None]
  - ASPARTATE AMINOTRANSFERASE INCREASED [None]
  - DRUG RASH WITH EOSINOPHILIA AND SYSTEMIC SYMPTOMS [None]
  - LEUKOPENIA [None]
  - LYMPHADENOPATHY [None]
  - LYMPHOPENIA [None]
  - PLATELET COUNT DECREASED [None]
  - PYREXIA [None]
